FAERS Safety Report 15205948 (Version 5)
Quarter: 2018Q4

REPORT INFORMATION
  Report Type: Spontaneous
  Country: CZ (occurrence: CZ)
  Receive Date: 20180727
  Receipt Date: 20181205
  Transmission Date: 20190204
  Serious: Yes (Other)
  Sender: FDA-Public Use
  Company Number: CZ-B.I. PHARMACEUTICALS,INC./RIDGEFIELD-2018-BI-037477

PATIENT
  Age: 71 Year
  Sex: Female

DRUGS (5)
  1. DOXYHEXAL [Concomitant]
     Active Substance: DOXYCYCLINE
     Indication: PRODUCT USED FOR UNKNOWN INDICATION
     Route: 065
     Dates: start: 201609
  2. PEMETREXED. [Concomitant]
     Active Substance: PEMETREXED
     Indication: NON-SMALL CELL LUNG CANCER
     Route: 065
     Dates: start: 20180405
  3. GILOTRIF [Suspect]
     Active Substance: AFATINIB
     Indication: NON-SMALL CELL LUNG CANCER
     Dosage: THERAPY START DATE: 07-JUN-2016
     Route: 048
     Dates: start: 20160607, end: 20160927
  4. GILOTRIF [Suspect]
     Active Substance: AFATINIB
     Route: 048
     Dates: start: 201708, end: 20180306
  5. GILOTRIF [Suspect]
     Active Substance: AFATINIB
     Route: 048
     Dates: start: 20160927, end: 201708

REACTIONS (18)
  - Paronychia [Not Recovered/Not Resolved]
  - Weight decreased [Unknown]
  - Haematotoxicity [Unknown]
  - Central nervous system lesion [Unknown]
  - Ocular discomfort [Recovered/Resolved]
  - Malignant neoplasm progression [Unknown]
  - Brain oedema [Unknown]
  - Neutropenia [Recovering/Resolving]
  - Dizziness [Recovered/Resolved]
  - Fatigue [Unknown]
  - Rash papular [Not Recovered/Not Resolved]
  - Stomatitis [Unknown]
  - Skin toxicity [Unknown]
  - Pre-existing condition improved [Unknown]
  - Leukopenia [Recovering/Resolving]
  - Diarrhoea [Unknown]
  - Rash [Unknown]
  - Leukopenia [Unknown]

NARRATIVE: CASE EVENT DATE: 201606
